FAERS Safety Report 5099930-X (Version None)
Quarter: 2006Q3

REPORT INFORMATION
  Report Type: 
  Country: None (occurrence: None)
  Receive Date: 20060906
  Receipt Date: 20060823
  Transmission Date: 20061208
  Serious: Yes (Hospitalization)
  Sender: FDA-Public Use
  Company Number: FRP06000881

PATIENT
  Age: 74 Year
  Sex: Female

DRUGS (3)
  1. ACTONEL [Suspect]
     Indication: OSTEOPOROSIS
     Dosage: 35 MG, 1/WEEK, ORAL
     Route: 048
     Dates: start: 20050615
  2. ENOXOR(ENOXACIN SESQUIHYDRATE) [Suspect]
     Indication: CYSTITIS
     Dosage: ORAL
     Route: 048
     Dates: start: 20060403, end: 20060401
  3. IDEOS (CALCIUM CARBONATE, COLECALCIFEROL) [Suspect]
     Indication: HYPOVITAMINOSIS
     Dosage: ORAL
     Route: 048
     Dates: start: 20050615

REACTIONS (8)
  - BLOOD CREATINE PHOSPHOKINASE INCREASED [None]
  - C-REACTIVE PROTEIN INCREASED [None]
  - CONDITION AGGRAVATED [None]
  - CYANOSIS [None]
  - DERMATOMYOSITIS [None]
  - PAIN IN EXTREMITY [None]
  - RAYNAUD'S PHENOMENON [None]
  - RHABDOMYOLYSIS [None]
